FAERS Safety Report 15334248 (Version 12)
Quarter: 2025Q1

REPORT INFORMATION
  Report Type: Spontaneous
  Country: US (occurrence: US)
  Receive Date: 20180830
  Receipt Date: 20250326
  Transmission Date: 20250408
  Serious: Yes (Hospitalization, Other)
  Sender: PFIZER
  Company Number: US-PFIZER INC-2018348119

PATIENT
  Age: 51 Year
  Sex: Male
  Weight: 95.25 kg

DRUGS (8)
  1. NARDIL [Suspect]
     Active Substance: PHENELZINE SULFATE
     Indication: Anxiety disorder
     Dosage: 45 MG, DAILY (THREE TABLETS)
     Route: 048
     Dates: start: 1979
  2. NARDIL [Suspect]
     Active Substance: PHENELZINE SULFATE
     Indication: Major depression
     Dosage: 60 MG, DAILY
  3. NARDIL [Suspect]
     Active Substance: PHENELZINE SULFATE
     Indication: Panic disorder
     Dosage: 30 MG, 3X/DAY (15MG TWO TABLETS BY MOUTH EVERY MORNING, AFTERNOON, AND BEDTIME)
     Route: 048
  4. NARDIL [Suspect]
     Active Substance: PHENELZINE SULFATE
     Indication: Panic attack
     Dates: end: 2003
  5. NARDIL [Suspect]
     Active Substance: PHENELZINE SULFATE
     Indication: Agoraphobia
  6. LOSARTAN [Concomitant]
     Active Substance: LOSARTAN
     Indication: Hypertension
     Dosage: 100 MG, 1X/DAY
     Route: 048
     Dates: start: 20180302
  7. AMLODIPINE [Concomitant]
     Active Substance: AMLODIPINE BESYLATE
     Indication: Hypertension
     Dosage: 5 MG, 1X/DAY
     Route: 048
  8. METOPROLOL [Concomitant]
     Active Substance: METOPROLOL
     Indication: Hypertension
     Dosage: 50 MG, 1X/DAY
     Route: 048

REACTIONS (8)
  - Bipolar disorder [Unknown]
  - Blood pressure increased [Unknown]
  - Feeling abnormal [Unknown]
  - Drug ineffective [Not Recovered/Not Resolved]
  - Reaction to excipient [Unknown]
  - Weight increased [Not Recovered/Not Resolved]
  - Constipation [Not Recovered/Not Resolved]
  - Malabsorption [Unknown]

NARRATIVE: CASE EVENT DATE: 20010401
